FAERS Safety Report 16479195 (Version 1)
Quarter: 2019Q2

REPORT INFORMATION
  Report Type: Spontaneous
  Country: US (occurrence: US)
  Receive Date: 20190626
  Receipt Date: 20190626
  Transmission Date: 20190711
  Serious: Yes (Other)
  Sender: FDA-Public Use
  Company Number: US-SAOL THERAPEUTICS-2019SAO00174

PATIENT
  Age: 57 Year
  Sex: Female

DRUGS (2)
  1. LIORESAL [Suspect]
     Active Substance: BACLOFEN
     Dosage: UNK
     Route: 037
     Dates: end: 20190408
  2. LIORESAL [Suspect]
     Active Substance: BACLOFEN
     Dosage: PUMP REFILLED WITH 40 ML LIORESAL
     Route: 037
     Dates: start: 20190408

REACTIONS (3)
  - Device dislocation [Recovered/Resolved]
  - Drug withdrawal syndrome [Unknown]
  - Incorrect route of product administration [Unknown]

NARRATIVE: CASE EVENT DATE: 20190408
